FAERS Safety Report 7359697-9 (Version None)
Quarter: 2011Q1

REPORT INFORMATION
  Report Type: 
  Country: None (occurrence: None)
  Receive Date: 20110317
  Receipt Date: 20100721
  Transmission Date: 20110831
  Serious: No
  Sender: FDA-Public Use
  Company Number: US-PFIZER INC-2010092303

PATIENT
  Sex: Male

DRUGS (1)
  1. NORVASC [Suspect]
     Dosage: 2.5 MG, UNK
     Route: 048

REACTIONS (3)
  - FOREIGN BODY [None]
  - OROPHARYNGEAL PAIN [None]
  - THROAT IRRITATION [None]
